FAERS Safety Report 8402187-2 (Version None)
Quarter: 2012Q2

REPORT INFORMATION
  Report Type: 
  Country: None (occurrence: None)
  Receive Date: 20120529
  Receipt Date: 20040329
  Transmission Date: 20120825
  Serious: Yes (Life-Threatening, Other)
  Sender: FDA-Public Use
  Company Number: 02100-JPN-04-0042

PATIENT
  Age: 61 Year
  Sex: Female
  Weight: 60 kg

DRUGS (8)
  1. NIVADIL (NILVADIPINE) TABLET [Concomitant]
  2. FAMOTIDINE [Concomitant]
  3. RADICUT (EDARAVONE) INJECTION [Concomitant]
  4. ERIL (FASUDIL HYDROCHLORIDE HYDRATE) INJECTION [Concomitant]
  5. PURSENNID (SENNOSIDE) TABLET [Concomitant]
  6. PLETAL [Suspect]
     Indication: CEREBRAL INFARCTION
     Dosage: 100 MG, BID, ORAL
     Route: 048
     Dates: start: 20040219, end: 20040224
  7. ALEVIATIN (PHENYTOIN) POWDER (EXCEPT [DPO]) [Concomitant]
  8. MAGNESIUM OXIDE (MAGNESIUM OXIDE) POWDER (EXCEPT [DPO]) [Concomitant]

REACTIONS (6)
  - SUBARACHNOID HAEMORRHAGE [None]
  - DEPRESSED LEVEL OF CONSCIOUSNESS [None]
  - BLOOD PRESSURE INCREASED [None]
  - PUPILS UNEQUAL [None]
  - CEREBRAL HAEMORRHAGE [None]
  - CEREBRAL INFARCTION [None]
